FAERS Safety Report 14281125 (Version 7)
Quarter: 2018Q1

REPORT INFORMATION
  Report Type: Spontaneous
  Country: FR (occurrence: FR)
  Receive Date: 20171213
  Receipt Date: 20180327
  Transmission Date: 20180508
  Serious: Yes (Other)
  Sender: FDA-Public Use
  Company Number: FR-JNJFOC-20171204940

PATIENT
  Age: 35 Year
  Sex: Male

DRUGS (14)
  1. FENTANYL. [Suspect]
     Active Substance: FENTANYL
     Indication: PELVIC PAIN
     Route: 050
  2. OXYCODONE HYDROCHLORIDE. [Suspect]
     Active Substance: OXYCODONE HYDROCHLORIDE
     Indication: PRODUCT USED FOR UNKNOWN INDICATION
     Route: 065
  3. GONADOTROPHINE [Concomitant]
     Route: 030
  4. BUPRENORPHINE AND NALOXONE [Suspect]
     Active Substance: BUPRENORPHINE\NALOXONE
     Indication: DRUG DEPENDENCE
     Dosage: 2MG DECREASE OF DOSE
     Route: 065
  5. BUPRENORPHINE AND NALOXONE [Suspect]
     Active Substance: BUPRENORPHINE\NALOXONE
     Indication: DRUG DEPENDENCE
     Dosage: STABLE DOSE
     Route: 065
  6. PREGABALIN. [Concomitant]
     Active Substance: PREGABALIN
     Route: 065
  7. HYDROCORTISONE. [Concomitant]
     Active Substance: HYDROCORTISONE
     Route: 065
  8. FENTANYL. [Suspect]
     Active Substance: FENTANYL
     Indication: PELVIC PAIN
     Route: 050
  9. ZOPIDEM [Concomitant]
     Active Substance: ZOLPIDEM\ZOLPIDEM TARTRATE
     Route: 065
  10. PENTOSAN POLYSULFATE SODIUM [Concomitant]
     Active Substance: PENTOSAN POLYSULFATE SODIUM
     Route: 065
  11. BUPRENORPHINE AND NALOXONE [Suspect]
     Active Substance: BUPRENORPHINE\NALOXONE
     Indication: DRUG DEPENDENCE
     Route: 065
  12. ZOPIDEM [Concomitant]
     Active Substance: ZOLPIDEM\ZOLPIDEM TARTRATE
     Dosage: IN THE EVENING
     Route: 065
  13. BUPRENORPHINE AND NALOXONE [Suspect]
     Active Substance: BUPRENORPHINE\NALOXONE
     Indication: DRUG DEPENDENCE
     Dosage: INCREASED UNTIL A STABLE DOSE OF 22 MG
     Route: 065
  14. VENLAFAXINE [Concomitant]
     Active Substance: VENLAFAXINE HYDROCHLORIDE
     Route: 065

REACTIONS (17)
  - Fatigue [Not Recovered/Not Resolved]
  - Headache [Unknown]
  - Hypogonadism [Not Recovered/Not Resolved]
  - Product use in unapproved indication [Unknown]
  - Thermophobia [Unknown]
  - Asthenia [Unknown]
  - Drug dependence [Recovering/Resolving]
  - Libido decreased [Unknown]
  - Overdose [Unknown]
  - Disturbance in attention [Unknown]
  - Hyperhidrosis [Unknown]
  - Memory impairment [Unknown]
  - Feeling cold [Unknown]
  - Hypopituitarism [Unknown]
  - Inappropriate schedule of drug administration [Unknown]
  - Adrenocorticotropic hormone deficiency [Not Recovered/Not Resolved]
  - Off label use [Unknown]
